FAERS Safety Report 4358043-2 (Version None)
Quarter: 2004Q2

REPORT INFORMATION
  Report Type: 
  Country: None (occurrence: None)
  Receive Date: 20040513
  Receipt Date: 20040224
  Transmission Date: 20050107
  Serious: No
  Sender: FDA-Public Use
  Company Number: 2004-00767

PATIENT
  Age: 74 Year
  Sex: Female
  Weight: 81.2 kg

DRUGS (10)
  1. GLIPIZIDE [Suspect]
     Indication: DIABETES MELLITUS NON-INSULIN-DEPENDENT
     Dosage: 1 TABLET, QAM, ORAL
     Route: 048
     Dates: start: 20040122
  2. METFORMIN (CARACO PHARMACEUTICALS) (METFORMIN) 1000MG [Suspect]
     Indication: DIABETES MELLITUS NON-INSULIN-DEPENDENT
     Dosage: 1 TABLET, QAM AND QPM, ORAL
     Route: 048
     Dates: start: 20040122
  3. CARDIZEM [Concomitant]
  4. FOLIC ACID [Concomitant]
  5. ENALAPRIL MALEATE [Concomitant]
  6. XALATAN [Concomitant]
  7. AZOPT [Concomitant]
  8. VITAMIN E [Concomitant]
  9. CALCIUM WITH VITAMIN D (CALCIUM SODIUM LACTATE, CALCIUM PHOSPHATE, ERG [Concomitant]
  10. ASPIRIN [Concomitant]

REACTIONS (4)
  - BLOOD GLUCOSE DECREASED [None]
  - ERYTHEMA [None]
  - TREMOR [None]
  - WEIGHT LOSS POOR [None]
